FAERS Safety Report 8446412-0 (Version None)
Quarter: 2012Q2

REPORT INFORMATION
  Report Type: 
  Country: None (occurrence: None)
  Receive Date: 20120618
  Receipt Date: 20120308
  Transmission Date: 20120825
  Serious: No
  Sender: FDA-Public Use
  Company Number: US-TEVA-327236USA

PATIENT
  Sex: Female

DRUGS (3)
  1. VALSARTAN [Concomitant]
  2. HYDROCHLOROTHIAZIDE [Concomitant]
  3. ACTIQ [Suspect]
     Indication: PAIN
     Route: 002

REACTIONS (4)
  - TOOTH LOSS [None]
  - DRUG ADMINISTRATION ERROR [None]
  - DENTAL CARIES [None]
  - DRUG PRESCRIBING ERROR [None]
